FAERS Safety Report 4748313-8 (Version None)
Quarter: 2005Q3

REPORT INFORMATION
  Report Type: 
  Country: None (occurrence: None)
  Receive Date: 20050815
  Receipt Date: 20050512
  Transmission Date: 20060218
  Serious: No
  Sender: FDA-Public Use
  Company Number: USA040670129

PATIENT
  Age: 72 Year
  Sex: Male
  Weight: 80 kg

DRUGS (9)
  1. CIALIS [Suspect]
     Indication: ERECTILE DYSFUNCTION
     Dosage: 20 MG AS NEEDED
     Dates: start: 20040611
  2. FLOMAX MR (TAMSULOSIN HYDROCHLORIDE) [Concomitant]
  3. ASPIRIN [Concomitant]
  4. ANTIBIOTIC [Concomitant]
  5. MULTI-VITAMIN [Concomitant]
  6. AVAPRO [Concomitant]
  7. AVODART [Concomitant]
  8. LOVASTATIN [Concomitant]
  9. NORVASC [Concomitant]

REACTIONS (1)
  - THERAPEUTIC RESPONSE DECREASED [None]
